FAERS Safety Report 4526976-X (Version None)
Quarter: 2004Q4

REPORT INFORMATION
  Report Type: 
  Country: None (occurrence: None)
  Receive Date: 20041207
  Receipt Date: 20041122
  Transmission Date: 20050328
  Serious: Yes (Death, Other)
  Sender: FDA-Public Use
  Company Number: THYM-10366

PATIENT
  Age: 4 Month

DRUGS (5)
  1. THYMOGLOBULIN [Suspect]
     Indication: ORGAN TRANSPLANT
     Dosage: 2 MG/KG DAILY IV
     Route: 042
  2. THYMOGLOBULIN [Suspect]
     Indication: THYMUS DISORDER
     Dosage: 2 MG/KG DAILY IV
     Route: 042
  3. ACETAMINOPHEN [Concomitant]
  4. METHYLPREDNISOLONE [Concomitant]
  5. DIPHENHYDRAMINE [Concomitant]

REACTIONS (5)
  - ALANINE AMINOTRANSFERASE INCREASED [None]
  - COMPLICATIONS OF TRANSPLANT SURGERY [None]
  - EOSINOPHIL COUNT INCREASED [None]
  - T-LYMPHOCYTE COUNT INCREASED [None]
  - THROMBOCYTOPENIA [None]
